FAERS Safety Report 8475601-4 (Version None)
Quarter: 2012Q2

REPORT INFORMATION
  Report Type: 
  Country: None (occurrence: None)
  Receive Date: 20120628
  Receipt Date: 20120625
  Transmission Date: 20120825
  Serious: No
  Sender: FDA-Public Use
  Company Number: US-BAYER-2012-063771

PATIENT
  Age: 82 Year
  Sex: Male
  Weight: 76 kg

DRUGS (4)
  1. UNKNOWN [Concomitant]
  2. UNKNOWN [Concomitant]
  3. UNKNOWN [Concomitant]
  4. ALEVE (CAPLET) [Suspect]
     Indication: ARTHRALGIA
     Dosage: UNK
     Route: 048
     Dates: start: 20090101

REACTIONS (1)
  - NO ADVERSE EVENT [None]
